FAERS Safety Report 23959147 (Version 5)
Quarter: 2024Q3

REPORT INFORMATION
  Report Type: Spontaneous
  Country: RU (occurrence: RU)
  Receive Date: 20240611
  Receipt Date: 20240826
  Transmission Date: 20241016
  Serious: Yes (Other)
  Sender: BIOGEN
  Company Number: RU-BIOGEN-2024BI01268475

PATIENT
  Age: 42 Year
  Sex: Female

DRUGS (3)
  1. PLEGRIDY [Suspect]
     Active Substance: PEGINTERFERON BETA-1A
     Indication: Relapsing-remitting multiple sclerosis
     Dosage: 63,94,125 UNITS: MCG
     Route: 050
     Dates: start: 20210507
  2. PLEGRIDY [Suspect]
     Active Substance: PEGINTERFERON BETA-1A
     Route: 050
     Dates: start: 20210521
  3. PLEGRIDY [Suspect]
     Active Substance: PEGINTERFERON BETA-1A
     Route: 050
     Dates: start: 20210604, end: 20230529

REACTIONS (7)
  - Hypothyroidism [Recovered/Resolved]
  - Drug ineffective [Unknown]
  - Autoimmune thyroiditis [Recovered/Resolved]
  - Goitre [Recovered/Resolved]
  - Multiple sclerosis [Unknown]
  - Intervertebral disc degeneration [Unknown]
  - Neutralising antibodies positive [Unknown]

NARRATIVE: CASE EVENT DATE: 20221203
